FAERS Safety Report 8257363-9 (Version None)
Quarter: 2012Q1

REPORT INFORMATION
  Report Type: 
  Country: None (occurrence: None)
  Receive Date: 20120330
  Receipt Date: 20120330
  Transmission Date: 20120608
  Serious: Yes (Other)
  Sender: FDA-Public Use
  Company Number: None

PATIENT
  Age: 31 Year
  Sex: Female
  Weight: 72.5755 kg

DRUGS (3)
  1. CABERGOLINE [Suspect]
     Indication: PITUITARY CYST
     Dosage: 2.0 MG EVERY WEDNESDAY MOUTH; 1.5 MG EVERY THURSDAY MOUTH
     Route: 048
     Dates: start: 20090601, end: 20110601
  2. CABERGOLINE [Suspect]
     Indication: BLOOD PROLACTIN INCREASED
     Dosage: 2.0 MG EVERY WEDNESDAY MOUTH; 1.5 MG EVERY THURSDAY MOUTH
     Route: 048
     Dates: start: 20090601, end: 20110601
  3. CABERGOLINE [Suspect]

REACTIONS (2)
  - INSOMNIA [None]
  - ANXIETY [None]
